FAERS Safety Report 9512132 (Version 1)
Quarter: 2013Q1

REPORT INFORMATION
  Report Type: Spontaneous
  Country: US (occurrence: None)
  Receive Date: 20130305
  Receipt Date: 20130305
  Transmission Date: 20140127
  Serious: Yes (Other)
  Sender: FDA-Public Use
  Company Number: 163-21880-12050539

PATIENT
  Age: 74 Year
  Sex: Female
  Weight: 46.27 kg

DRUGS (11)
  1. REVLIMID [Suspect]
     Indication: PLASMA CELL MYELOMA
     Dosage: 10 MG, 1 IN 1 D, PO
     Route: 048
     Dates: start: 20110702, end: 2011
  2. ASA (ACETYLSALICYLIC ACID) (UNKNOWN)? [Concomitant]
  3. AMLODIPINE BESYLATE (AMLODIPNE BESILATE) (UNKNOWN)? [Concomitant]
  4. DARVON (DEXTROPROPOXYPHENE HYDROCHLORIDE) (UNKNOWN)? [Concomitant]
  5. IRON (IRON) (UNKNOW) [Concomitant]
  6. LEVOTHYROXINE (LEVOTHYROXINE) (UNKNOWN) [Concomitant]
  7. MECLIZINE HCL (MECLOXINE HYDROCHLORIDE) (UNKNOWN) [Concomitant]
  8. TRAMADOL HCL (TRAMADOL HYDROCHLORIDE) (UNKNOWN)? [Concomitant]
  9. BABY ASPIRIN (ACETYLSALICYLIC ACID) (TABLETS)? [Concomitant]
  10. CITALOPRAM HBR (CITALOPRAM HYDROBROMIDE) (UNKNOWN) [Concomitant]
  11. DIOVAN (VALSARTAN) (TABLETS) [Concomitant]

REACTIONS (4)
  - Full blood count decreased [None]
  - Diarrhoea [None]
  - Dry skin [None]
  - Dizziness [None]
